FAERS Safety Report 4345153-9 (Version None)
Quarter: 2004Q2

REPORT INFORMATION
  Report Type: 
  Country: None (occurrence: None)
  Receive Date: 20040421
  Receipt Date: 20040421
  Transmission Date: 20050107
  Serious: Yes (Hospitalization)
  Sender: FDA-Public Use
  Company Number: None

PATIENT
  Age: 73 Year
  Sex: Male
  Weight: 95.3 kg

DRUGS (4)
  1. VINORELBINE TARTRATE [Suspect]
     Indication: NON-SMALL CELL LUNG CANCER
     Dosage: 56 MG DAYS 1 + 8 INTRAVENOUS
     Route: 042
     Dates: start: 20040330, end: 20040406
  2. GEMCITABINE [Suspect]
     Indication: NON-SMALL CELL LUNG CANCER
     Dosage: 2250 MG DAYS 1 + 8 INTRAVENOUS
     Route: 042
     Dates: start: 20040330, end: 20040406
  3. LORTAB [Concomitant]
  4. TYLENOL PLUS [Concomitant]

REACTIONS (1)
  - FEBRILE NEUTROPENIA [None]
